FAERS Safety Report 13229242 (Version 6)
Quarter: 2019Q3

REPORT INFORMATION
  Report Type: Report from Study
  Country: KR (occurrence: KR)
  Receive Date: 20170214
  Receipt Date: 20190916
  Transmission Date: 20191004
  Serious: Yes (Hospitalization)
  Sender: FDA-Public Use
  Company Number: KR-ROCHE-1892296

PATIENT
  Age: 62 Year
  Sex: Male
  Weight: 60 kg

DRUGS (15)
  1. MAXNOPHEN [Concomitant]
     Indication: TUMOUR PAIN
     Route: 065
     Dates: start: 20170117, end: 20170210
  2. LIDOCAINA VISCOSA [Concomitant]
     Indication: STOMATITIS
     Route: 065
     Dates: start: 20170119, end: 20170124
  3. XYZAL [Concomitant]
     Active Substance: LEVOCETIRIZINE DIHYDROCHLORIDE
     Indication: URTICARIA
     Route: 065
     Dates: start: 20170118, end: 20170207
  4. MEGESTROL [Concomitant]
     Active Substance: MEGESTROL
     Indication: DECREASED APPETITE
     Route: 065
     Dates: start: 20170102, end: 20170210
  5. MAXNOPHEN [Concomitant]
     Indication: CANCER PAIN
     Route: 065
     Dates: start: 20170114, end: 20170116
  6. SMOFLIPID [Concomitant]
     Active Substance: FISH OIL\MEDIUM-CHAIN TRIGLYCERIDES\OLIVE OIL\SOYBEAN OIL
     Indication: DECREASED APPETITE
     Route: 065
     Dates: start: 20170116, end: 20170120
  7. SMOFLIPID [Concomitant]
     Active Substance: FISH OIL\MEDIUM-CHAIN TRIGLYCERIDES\OLIVE OIL\SOYBEAN OIL
     Route: 065
     Dates: start: 20170210, end: 20170210
  8. DESOWEN [Concomitant]
     Active Substance: DESONIDE
     Indication: URTICARIA
     Route: 065
     Dates: start: 20170116, end: 20170210
  9. ATEZOLIZUMAB. [Suspect]
     Active Substance: ATEZOLIZUMAB
     Indication: NON-SMALL CELL LUNG CANCER
     Dosage: THE MOST RECENT DOSE OF ATEZOLIZUMAB WAS ADMINISTERED ON 02/JAN/2017.
     Route: 042
     Dates: start: 20170102
  10. ALLEGRA [Concomitant]
     Active Substance: FEXOFENADINE HYDROCHLORIDE
     Indication: URTICARIA
     Route: 065
     Dates: start: 20170116, end: 20170124
  11. TARGIN [Concomitant]
     Active Substance: NALOXONE HYDROCHLORIDE\OXYCODONE HYDROCHLORIDE
     Indication: CANCER PAIN
     Route: 065
     Dates: start: 20170120, end: 20170209
  12. TACOPEN [Concomitant]
     Indication: CANCER PAIN
     Route: 065
     Dates: start: 20170117, end: 20170209
  13. TRAMADOL. [Concomitant]
     Active Substance: TRAMADOL
     Indication: CANCER PAIN
     Route: 065
     Dates: start: 20170114, end: 20170114
  14. HEPATAMINE [ARGININE;BETA-ALANINE;CYSTEINE HYDROCHLORIDE;GLYCINE;HISTI [Concomitant]
     Indication: DECREASED APPETITE
     Route: 065
     Dates: start: 20170114, end: 20170114
  15. ADIPAM [HYDROXYZINE HYDROCHLORIDE] [Concomitant]
     Active Substance: HYDROXYZINE HYDROCHLORIDE
     Indication: URTICARIA
     Route: 065
     Dates: start: 20170118, end: 20170123

REACTIONS (1)
  - Delirium [Not Recovered/Not Resolved]

NARRATIVE: CASE EVENT DATE: 20170206
